FAERS Safety Report 9556390 (Version 1)
Quarter: 2013Q3

REPORT INFORMATION
  Report Type: Spontaneous
  Country: US (occurrence: None)
  Receive Date: 20130724
  Receipt Date: 20130724
  Transmission Date: 20140515
  Serious: No
  Sender: FDA-Public Use
  Company Number: PHEH2013US006691

PATIENT
  Sex: Female

DRUGS (1)
  1. GILENYA (FINGOLIMOD) CAPSULE, 0.5MG [Suspect]
     Dosage: 0.5 MG, QD, ORAL
     Route: 048

REACTIONS (4)
  - Hair texture abnormal [None]
  - Dry eye [None]
  - Dry skin [None]
  - Pain [None]
